FAERS Safety Report 4357452-5 (Version None)
Quarter: 2004Q2

REPORT INFORMATION
  Report Type: 
  Country: None (occurrence: None)
  Receive Date: 20040506
  Receipt Date: 20040426
  Transmission Date: 20050107
  Serious: Yes (Other)
  Sender: FDA-Public Use
  Company Number: 2004028841

PATIENT
  Age: 43 Year
  Sex: Male
  Weight: 88.4514 kg

DRUGS (2)
  1. LOPID [Suspect]
     Indication: BLOOD CHOLESTEROL INCREASED
     Dosage: ^YEARS AGO^
  2. ATENOLOL [Concomitant]

REACTIONS (12)
  - ACCIDENT [None]
  - ARTHRALGIA [None]
  - BONE DISORDER [None]
  - CARTILAGE INJURY [None]
  - CHONDROPATHY [None]
  - FALL [None]
  - HIP FRACTURE [None]
  - HYPERTENSION [None]
  - NERVOUS SYSTEM DISORDER [None]
  - PAIN [None]
  - PAIN IN EXTREMITY [None]
  - SPINAL FRACTURE [None]
